FAERS Safety Report 8238810-5 (Version None)
Quarter: 2012Q1

REPORT INFORMATION
  Report Type: 
  Country: None (occurrence: None)
  Receive Date: 20120327
  Receipt Date: 20120319
  Transmission Date: 20120608
  Serious: Yes (Other)
  Sender: FDA-Public Use
  Company Number: US-ELI_LILLY_AND_COMPANY-US201201008988

PATIENT
  Weight: 42.2 kg

DRUGS (6)
  1. FORTEO [Suspect]
     Dosage: UNK, QD
     Route: 058
     Dates: start: 20111118, end: 20111201
  2. METOPROLOL SUCCINATE [Concomitant]
  3. TRIAMTEREN HCT [Concomitant]
  4. ALLEGRA [Concomitant]
  5. ASPIRIN [Concomitant]
  6. CALCIUM +D                         /00188401/ [Concomitant]

REACTIONS (6)
  - ASTHENIA [None]
  - FALL [None]
  - REHABILITATION THERAPY [None]
  - GAIT DISTURBANCE [None]
  - DIZZINESS [None]
  - COORDINATION ABNORMAL [None]
